FAERS Safety Report 26042211 (Version 1)
Quarter: 2025Q4

REPORT INFORMATION
  Report Type: Spontaneous
  Country: US (occurrence: None)
  Receive Date: 20251113
  Receipt Date: 20251113
  Transmission Date: 20260117
  Serious: Yes (Death)
  Sender: FDA-CTU
  Company Number: None

PATIENT
  Age: 76 Year
  Sex: Female
  Weight: 72 kg

DRUGS (11)
  1. LENALIDOMIDE [Suspect]
     Active Substance: LENALIDOMIDE
     Indication: Plasma cell myeloma
     Dosage: FREQUENCY : DAILY;?
     Route: 048
     Dates: start: 20250917, end: 20251024
  2. hydrocodone 5 mg-acetaminophen 325 mg tablet [Concomitant]
  3. ACYCLOVIR [Concomitant]
     Active Substance: ACYCLOVIR
  4. Compazine 10 mg tablet [Concomitant]
  5. ondansetron 8 mg disintegrating tablet [Concomitant]
  6. SINGULAIR [Concomitant]
     Active Substance: MONTELUKAST SODIUM
  7. DEXAMETHASONE [Concomitant]
     Active Substance: DEXAMETHASONE
  8. megestrol 800 mg/20 mL (20 mL) oral suspension [Concomitant]
  9. Eliquis 2.5 mg tablet [Concomitant]
  10. duloxetine 20 mg capsule,delayed release [Concomitant]
  11. methylprednisolone 4 mg tablet [Concomitant]

REACTIONS (1)
  - Death [None]

NARRATIVE: CASE EVENT DATE: 20251024
